FAERS Safety Report 6541912-2 (Version None)
Quarter: 2010Q1

REPORT INFORMATION
  Report Type: 
  Country: None (occurrence: None)
  Receive Date: 20100119
  Receipt Date: 20100108
  Transmission Date: 20100710
  Serious: Yes (Hospitalization)
  Sender: FDA-Public Use
  Company Number: GB-NAPPMUNDI-GBR-2010-0006005

PATIENT
  Sex: Female

DRUGS (5)
  1. MST CONTINUS TABLETS 60 MG [Suspect]
     Indication: DRUG USE FOR UNKNOWN INDICATION
     Dosage: 60 MG, UNK
     Dates: start: 20091216
  2. ORAMORPH SR [Concomitant]
     Indication: DRUG USE FOR UNKNOWN INDICATION
     Dosage: UNK
     Dates: start: 20091209
  3. GSAO [Suspect]
     Indication: ENDOMETRIAL CANCER METASTATIC
     Dosage: 12.2 MG, CYCLE 2 DAY 11
     Route: 042
     Dates: start: 20091217
  4. GSAO [Suspect]
     Dosage: 12.2 MG, CYCLE 2
     Route: 042
     Dates: start: 20091207
  5. GSAO [Suspect]
     Dosage: 12.2 MG, CYCLE 1
     Route: 042
     Dates: start: 20091116

REACTIONS (4)
  - DEHYDRATION [None]
  - HYPOPHAGIA [None]
  - NAUSEA [None]
  - VOMITING [None]
